FAERS Safety Report 6887316-4 (Version None)
Quarter: 2010Q3

REPORT INFORMATION
  Report Type: 
  Country: None (occurrence: None)
  Receive Date: 20100730
  Receipt Date: 20090716
  Transmission Date: 20110219
  Serious: No
  Sender: FDA-Public Use
  Company Number: A0797322A

PATIENT
  Age: 28 Year
  Sex: Female

DRUGS (3)
  1. IMITREX [Suspect]
     Indication: MIGRAINE
     Dosage: 50MG AS REQUIRED
     Route: 048
     Dates: start: 20030101
  2. TOPAMAX [Concomitant]
  3. BOTOX [Concomitant]

REACTIONS (6)
  - BREAST CYST [None]
  - BREAST MASS [None]
  - DRUG INEFFECTIVE [None]
  - MENSTRUATION IRREGULAR [None]
  - MUSCULOSKELETAL PAIN [None]
  - NECK PAIN [None]
